FAERS Safety Report 14987069 (Version 4)
Quarter: 2018Q3

REPORT INFORMATION
  Report Type: Spontaneous
  Country: US (occurrence: US)
  Receive Date: 20180608
  Receipt Date: 20180827
  Transmission Date: 20181010
  Serious: No
  Sender: FDA-Public Use
  Company Number: US-JNJFOC-20180427011

PATIENT
  Age: 79 Year
  Sex: Female

DRUGS (3)
  1. LEVOTHYROXINE. [Concomitant]
     Active Substance: LEVOTHYROXINE
     Indication: PRODUCT USED FOR UNKNOWN INDICATION
     Route: 065
  2. PEPCID AC [Suspect]
     Active Substance: FAMOTIDINE
     Indication: PAIN
     Dosage: ONE TABLET AT NIGHT (ONLY USED SIX OF THE TABLETS) FOR ONE WEEK ONLY
     Route: 048
     Dates: start: 20180414, end: 20180420
  3. PEPCID AC [Suspect]
     Active Substance: FAMOTIDINE
     Indication: ABDOMINAL DISTENSION
     Dosage: ONE TABLET AT NIGHT (ONLY USED SIX OF THE TABLETS) FOR ONE WEEK ONLY
     Route: 048
     Dates: start: 20180414, end: 20180420

REACTIONS (2)
  - Abdominal distension [Recovered/Resolved]
  - Abdominal pain [Recovered/Resolved]

NARRATIVE: CASE EVENT DATE: 20180417
